FAERS Safety Report 9976835 (Version 1)
Quarter: 2014Q1

REPORT INFORMATION
  Report Type: Report from Study
  Country: US (occurrence: US)
  Receive Date: 20140306
  Receipt Date: 20140306
  Transmission Date: 20141002
  Serious: No
  Sender: FDA-Public Use
  Company Number: US-ABBVIE-13P-163-1167683-00

PATIENT
  Sex: Male

DRUGS (4)
  1. HUMIRA [Suspect]
     Indication: CROHN^S DISEASE
     Dates: start: 2006
  2. DIOVAN [Concomitant]
     Indication: HYPERTENSION
  3. PLAVIX [Concomitant]
     Indication: THROMBOSIS
  4. PLAVIX [Concomitant]
     Indication: CEREBROVASCULAR ACCIDENT

REACTIONS (2)
  - Fatigue [Not Recovered/Not Resolved]
  - Blood magnesium decreased [Recovered/Resolved]
